FAERS Safety Report 4856089-9 (Version None)
Quarter: 2005Q4

REPORT INFORMATION
  Report Type: 
  Country: None (occurrence: None)
  Receive Date: 20051216
  Receipt Date: 20050314
  Transmission Date: 20060501
  Serious: Yes (Hospitalization, Disabling)
  Sender: FDA-Public Use
  Company Number: US-MERCK-0503USA02980

PATIENT
  Age: 77 Year
  Sex: Female
  Weight: 68 kg

DRUGS (3)
  1. VIOXX [Suspect]
     Indication: ARTHRITIS
     Route: 048
     Dates: start: 20020127, end: 20030401
  2. VIOXX [Suspect]
     Route: 048
     Dates: start: 20030701, end: 20040801
  3. ECOTRIN [Concomitant]
     Route: 065

REACTIONS (15)
  - ADVERSE EVENT [None]
  - ARTERIOSCLEROSIS CORONARY ARTERY [None]
  - CEREBROVASCULAR ACCIDENT [None]
  - COORDINATION ABNORMAL [None]
  - CYST [None]
  - DEPRESSION [None]
  - GASTROOESOPHAGEAL REFLUX DISEASE [None]
  - HYPERTENSION [None]
  - KLEBSIELLA INFECTION [None]
  - LACUNAR INFARCTION [None]
  - RENAL CYST [None]
  - RENAL FAILURE CHRONIC [None]
  - SICK SINUS SYNDROME [None]
  - VERTEBROBASILAR INSUFFICIENCY [None]
  - VERTIGO [None]
